FAERS Safety Report 4606344-2 (Version None)
Quarter: 2005Q2

REPORT INFORMATION
  Report Type: 
  Country: None (occurrence: None)
  Receive Date: 20050223
  Receipt Date: 20041203
  Transmission Date: 20051028
  Serious: Yes (Disabling)
  Sender: FDA-Public Use
  Company Number: WAES 0412USA00542

PATIENT
  Age: 62 Year
  Sex: Female

DRUGS (1)
  1. ZOCOR [Suspect]
     Indication: BLOOD CHOLESTEROL INCREASED
     Dosage: 20 MG/DAILY/PO
     Route: 048
     Dates: start: 20041111, end: 20041127

REACTIONS (1)
  - RHABDOMYOLYSIS [None]
